FAERS Safety Report 19699365 (Version 1)
Quarter: 2021Q3

REPORT INFORMATION
  Report Type: Spontaneous
  Country: US (occurrence: US)
  Receive Date: 20210813
  Receipt Date: 20210813
  Transmission Date: 20211014
  Serious: No
  Sender: FDA-Public Use
  Company Number: US-ANIPHARMA-2021-US-004299

PATIENT
  Sex: Female

DRUGS (1)
  1. INDAPAMIDE TABLETS USP [Suspect]
     Active Substance: INDAPAMIDE
     Indication: HYPERTENSION
     Dosage: 1 TABLET DAILY
     Route: 048
     Dates: start: 2019, end: 2019

REACTIONS (7)
  - Rash [Recovered/Resolved]
  - Dry skin [Recovered/Resolved]
  - Skin fissures [Recovered/Resolved]
  - Eczema [Recovered/Resolved]
  - Hot flush [Recovered/Resolved]
  - Pruritus [Recovered/Resolved]
  - Allergic reaction to excipient [Recovered/Resolved]

NARRATIVE: CASE EVENT DATE: 2019
